FAERS Safety Report 9330974 (Version 1)
Quarter: 2013Q2

REPORT INFORMATION
  Report Type: Report from Study
  Country: US (occurrence: US)
  Receive Date: 20130605
  Receipt Date: 20130605
  Transmission Date: 20140414
  Serious: Yes (Other)
  Sender: FDA-Public Use
  Company Number: US-ASTELLAS-2013US005864

PATIENT
  Sex: Female

DRUGS (1)
  1. ERLOTINIB TABLET [Suspect]
     Indication: PANCREATIC CARCINOMA
     Dosage: 100 MG, QOD
     Route: 048
     Dates: start: 20100101

REACTIONS (3)
  - Inappropriate schedule of drug administration [Unknown]
  - Macular degeneration [Not Recovered/Not Resolved]
  - Eye irritation [Not Recovered/Not Resolved]
